FAERS Safety Report 22293833 (Version 1)
Quarter: 2023Q2

REPORT INFORMATION
  Report Type: Spontaneous
  Country: NL (occurrence: NL)
  Receive Date: 20230508
  Receipt Date: 20230508
  Transmission Date: 20230722
  Serious: Yes (Other)
  Sender: FDA-Public Use
  Company Number: None

PATIENT
  Sex: Male
  Weight: 67.5 kg

DRUGS (14)
  1. OXYBUTYNIN [Suspect]
     Active Substance: OXYBUTYNIN
     Indication: Urinary incontinence
     Dosage: 5 MILLIGRAM, Q8H, 1 PIECE 3X PER DAY
     Route: 065
     Dates: start: 20230315, end: 20230317
  2. OXYBUTYNIN [Suspect]
     Active Substance: OXYBUTYNIN
     Indication: Bladder spasm
  3. FLUIMUCIL [Concomitant]
     Active Substance: ACETYLCYSTEINE
     Dosage: NEBULIZER, 100 MG/ML (MILLIGRAMS PER MILLILITER)
     Route: 065
  4. PREDNISOLONE [Concomitant]
     Active Substance: PREDNISOLONE
     Dosage: 5 MILLIGRAM, TABLET, 5 MG (MILIGRAM)
     Route: 065
  5. ALBUTEROL SULFATE\IPRATROPIUM BROMIDE [Concomitant]
     Active Substance: ALBUTEROL SULFATE\IPRATROPIUM BROMIDE
     Dosage: NEBULIZER, 1/0.2 MG/ML (MILLIGRAMS PER MILLILITER)
     Route: 065
  6. LIORESAL [Concomitant]
     Active Substance: BACLOFEN
     Dosage: 5 MILLIGRAM, TABLET, 5 MG (MILLIGRAM)
     Route: 065
  7. ZITHROMAX [Concomitant]
     Active Substance: AZITHROMYCIN DIHYDRATE
     Dosage: 250 MILLIGRAM, TABLET, 250 MG (MILLIGRAM)
     Route: 065
  8. FOSINOPRIL SODIUM [Concomitant]
     Active Substance: FOSINOPRIL SODIUM
     Dosage: 0.5 MILLIGRAM, TABLET, 0,5 MG (MILIGRAM)
     Route: 065
  9. TAMSULOSIN HYDROCHLORIDE [Concomitant]
     Active Substance: TAMSULOSIN HYDROCHLORIDE
     Dosage: REGULATED-RELEASE TABLET, 0.4 MG (MILLIGRAMS)
     Route: 065
  10. CLOPIDOGREL [Concomitant]
     Active Substance: CLOPIDOGREL BISULFATE
     Dosage: 75 MILLIGRAM, TABLET, 75 MG (MILLIGRAM)
     Route: 065
  11. BUDESONIDE [Concomitant]
     Active Substance: BUDESONIDE
     Dosage: NEBULIZER 0.25 MILLIGRAM PER MILLILITRE
     Route: 065
  12. D CURA [Concomitant]
     Dosage: DRINK, 25000 IU/ML (UNITS PER MILLILITER)
     Route: 065
  13. HYDROCHLOROTHIAZIDE [Concomitant]
     Active Substance: HYDROCHLOROTHIAZIDE
     Dosage: 12.5 MILLIGRAM, TABLET, 12,5 MG (MILLIGRAM)
     Route: 065
  14. MOVICOLON [Concomitant]
     Active Substance: POLYETHYLENE GLYCOL 3350\POTASSIUM CHLORIDE\SODIUM BICARBONATE\SODIUM CHLORIDE
     Dosage: POWDER FOR DRINK
     Route: 065

REACTIONS (1)
  - Angioedema [Recovered/Resolved]
